FAERS Safety Report 5825218-2 (Version None)
Quarter: 2008Q3

REPORT INFORMATION
  Report Type: 
  Country: None (occurrence: None)
  Receive Date: 20080729
  Receipt Date: 20080723
  Transmission Date: 20090109
  Serious: Yes (Death, Disabling)
  Sender: FDA-Public Use
  Company Number: PHHY2008BR12255

PATIENT
  Sex: Female
  Weight: 51.8 kg

DRUGS (8)
  1. SANDIMMUNE [Suspect]
     Indication: PROPHYLAXIS AGAINST GRAFT VERSUS HOST DISEASE
     Dosage: 75 MG, Q12H
     Route: 042
     Dates: start: 20080603, end: 20080625
  2. FLUCONAZOLE [Concomitant]
  3. ACYCLOVIR [Concomitant]
  4. ONDANSETRON [Concomitant]
  5. CEFEPIME [Concomitant]
  6. GRANULOKINE [Concomitant]
  7. URSODIOL [Concomitant]
  8. OMEPRAZOLE [Concomitant]

REACTIONS (6)
  - ABDOMINAL PAIN [None]
  - CHEST PAIN [None]
  - NECK PAIN [None]
  - PHARMACEUTICAL PRODUCT COMPLAINT [None]
  - RESPIRATORY FAILURE [None]
  - VISION BLURRED [None]
